FAERS Safety Report 7530216-7 (Version None)
Quarter: 2011Q2

REPORT INFORMATION
  Report Type: 
  Country: None (occurrence: None)
  Receive Date: 20110607
  Receipt Date: 20110531
  Transmission Date: 20111010
  Serious: Yes (Other)
  Sender: FDA-Public Use
  Company Number: PHHY2011ES47097

PATIENT

DRUGS (3)
  1. OMEGA-3 FATTY ACIDS [Suspect]
  2. SIMVASTATIN [Suspect]
     Dosage: 10 MG/DAY
  3. SIMVASTATIN [Suspect]
     Indication: HYPERCHOLESTEROLAEMIA
     Dosage: 40 MG/DAY

REACTIONS (7)
  - RENAL IMPAIRMENT [None]
  - DEPRESSION [None]
  - SOMNOLENCE [None]
  - INSOMNIA [None]
  - HYPOTHYROIDISM [None]
  - RHABDOMYOLYSIS [None]
  - ASTHENIA [None]
